FAERS Safety Report 24670604 (Version 1)
Quarter: 2024Q4

REPORT INFORMATION
  Report Type: Spontaneous
  Country: TR (occurrence: TR)
  Receive Date: 20241127
  Receipt Date: 20241127
  Transmission Date: 20250115
  Serious: Yes (Other)
  Sender: REGENERON
  Company Number: TR-BAYER-2024A167300

PATIENT
  Age: 72 Year

DRUGS (1)
  1. EYLEA [Suspect]
     Active Substance: AFLIBERCEPT
     Indication: Product used for unknown indication
     Dosage: UNK, 40 MG/ML
     Dates: start: 202411

REACTIONS (3)
  - Blindness [Unknown]
  - Endophthalmitis [Unknown]
  - Hypopyon [Unknown]
